FAERS Safety Report 16478318 (Version 2)
Quarter: 2019Q2

REPORT INFORMATION
  Report Type: Spontaneous
  Country: CO (occurrence: CO)
  Receive Date: 20190626
  Receipt Date: 20190629
  Transmission Date: 20190711
  Serious: Yes (Hospitalization, Other)
  Sender: FDA-Public Use
  Company Number: CO-AMGEN-COLSP2019099017

PATIENT
  Sex: Female

DRUGS (1)
  1. PROLIA [Suspect]
     Active Substance: DENOSUMAB
     Indication: PRODUCT USED FOR UNKNOWN INDICATION
     Dosage: UNK UNK, Q6MO
     Route: 065

REACTIONS (7)
  - Brain injury [Unknown]
  - Sensory disturbance [Unknown]
  - Visual acuity reduced [Unknown]
  - Coma [Unknown]
  - Headache [Unknown]
  - Vertigo [Unknown]
  - Seizure [Unknown]

NARRATIVE: CASE EVENT DATE: 2019
